FAERS Safety Report 5509503-X (Version None)
Quarter: 2007Q4

REPORT INFORMATION
  Report Type: 
  Country: None (occurrence: None)
  Receive Date: 20071106
  Receipt Date: 20071023
  Transmission Date: 20080405
  Serious: Yes (Death, Other)
  Sender: FDA-Public Use
  Company Number: 2007US002661

PATIENT
  Age: 58 Year
  Sex: Female

DRUGS (9)
  1. PROGRAF [Suspect]
     Indication: LUNG TRANSPLANT
     Dosage: 6 MG, UID/QD, ORAL ; 1.5 MG, UID/QD, ORAL
     Route: 048
  2. PREDNISONE TAB [Concomitant]
  3. MYCOPHENOLATE MOFETIL [Concomitant]
  4. CITALOPRAM (CITALOPRAM HYDROCHLORIDE) [Concomitant]
  5. NYSTATIN [Concomitant]
  6. OMEPRAZOLE [Concomitant]
  7. VALGANCICLOVIR HCL [Concomitant]
  8. TRIMETOPRIM + SULFAMETOXAZOL (TRIMETHOPRIM, SULFAMETHOXAZOLE) [Concomitant]
  9. DOCUSATE SODIUM (DOCUSATE SODIUM) [Concomitant]

REACTIONS (3)
  - BUCCAL POLYP [None]
  - COMPLICATIONS OF TRANSPLANT SURGERY [None]
  - GINGIVAL HYPERPLASIA [None]
